FAERS Safety Report 4359474-7 (Version None)
Quarter: 2004Q2

REPORT INFORMATION
  Report Type: 
  Country: None (occurrence: None)
  Receive Date: 20040512
  Receipt Date: 20040507
  Transmission Date: 20050107
  Serious: No
  Sender: FDA-Public Use
  Company Number: TPA2003A00116

PATIENT
  Age: 58 Year
  Sex: Female
  Weight: 119.296 kg

DRUGS (13)
  1. PIOGLITAZONE HYDROCHLORIDE (PIOGLITAZONE  HYDROCHLORIDE) (45 MILLIGRAM [Suspect]
     Indication: DIABETES MELLITUS NON-INSULIN-DEPENDENT
     Dosage: 45 MG, 1 IN 1 D, PER ORAL
     Route: 048
     Dates: start: 20010614, end: 20030127
  2. GLUCOPHAGE (850 MILLIGRAM) [Concomitant]
  3. LEVOXYL (LEVOTHYROXINE SODIUM) (30 MICROGRAM) [Concomitant]
  4. MAXAIR [Concomitant]
  5. NAPROSYN [Concomitant]
  6. K-DUR 10 [Concomitant]
  7. ASPIRIN [Concomitant]
  8. WELLBUTRIN [Concomitant]
  9. TRICOR [Concomitant]
  10. ZOCOR (40 MILLIGRAM) [Concomitant]
  11. ALDACTAZIDE (ALDACTAZIDE A) (TABLETS) [Concomitant]
  12. CYCRIN [Concomitant]
  13. PREMARIN [Concomitant]

REACTIONS (8)
  - BLADDER CANCER [None]
  - BLADDER TUMOUR RESECTION [None]
  - CULTURE URINE POSITIVE [None]
  - ESCHERICHIA INFECTION [None]
  - HAEMATURIA [None]
  - NOCTURIA [None]
  - POLLAKIURIA [None]
  - URGE INCONTINENCE [None]
